FAERS Safety Report 7000511-9 (Version None)
Quarter: 2010Q3

REPORT INFORMATION
  Report Type: 
  Country: None (occurrence: None)
  Receive Date: 20100920
  Receipt Date: 20100701
  Transmission Date: 20110219
  Serious: No
  Sender: FDA-Public Use
  Company Number: US-ASTRAZENECA-2007UW01409

PATIENT
  Age: 11818 Day
  Sex: Female
  Weight: 120.2 kg

DRUGS (20)
  1. SEROQUEL [Suspect]
     Indication: DEPRESSION
     Route: 048
     Dates: start: 20011107
  2. SEROQUEL [Suspect]
     Indication: ANXIETY
     Route: 048
     Dates: start: 20011107
  3. SEROQUEL [Suspect]
     Indication: SLEEP DISORDER
     Route: 048
     Dates: start: 20011107
  4. SEROQUEL [Suspect]
     Route: 048
     Dates: start: 20020208
  5. SEROQUEL [Suspect]
     Route: 048
     Dates: start: 20020208
  6. SEROQUEL [Suspect]
     Route: 048
     Dates: start: 20020208
  7. CLONAZEPAM [Concomitant]
     Dosage: 0.5-1.0 MG
     Route: 065
     Dates: start: 19990712, end: 20051107
  8. ETODOLAC [Concomitant]
     Route: 065
  9. ZOCOR [Concomitant]
     Route: 065
  10. IMIPRAMINE [Concomitant]
     Route: 065
  11. HYDROCODONE [Concomitant]
     Route: 065
  12. OXYCODONE HCL [Concomitant]
     Route: 065
  13. PAXIL [Concomitant]
     Dosage: 20-30 MG
     Route: 065
  14. IBUPROFEN [Concomitant]
     Dosage: 200-800 MG
     Route: 065
  15. ACETAMINOPHEN [Concomitant]
     Route: 065
  16. HYDROCHLOROTHIAZIDE [Concomitant]
     Route: 065
  17. NITROFURANTOIN [Concomitant]
     Route: 065
  18. AVANDIA [Concomitant]
     Route: 065
  19. METFORMIN [Concomitant]
     Route: 065
  20. BUMETANIDE [Concomitant]
     Route: 065

REACTIONS (9)
  - BLOOD CHOLESTEROL INCREASED [None]
  - BLOOD TRIGLYCERIDES INCREASED [None]
  - HYPERLIPIDAEMIA [None]
  - HYPERTENSION [None]
  - JOINT SPRAIN [None]
  - SINUSITIS [None]
  - TYPE 2 DIABETES MELLITUS [None]
  - WEIGHT INCREASED [None]
  - WOUND [None]
